FAERS Safety Report 5499001-4 (Version None)
Quarter: 2007Q4

REPORT INFORMATION
  Report Type: 
  Country: None (occurrence: None)
  Receive Date: 20071026
  Receipt Date: 20070515
  Transmission Date: 20080405
  Serious: No
  Sender: FDA-Public Use
  Company Number: A0651417A

PATIENT
  Age: 72 Year
  Sex: Female

DRUGS (7)
  1. ADVAIR DISKUS 100/50 [Suspect]
     Indication: CHRONIC OBSTRUCTIVE PULMONARY DISEASE
     Dosage: 1PUFF TWICE PER DAY
     Route: 055
     Dates: start: 20070401
  2. GLUCOSAMINE CHONDROITIN [Concomitant]
  3. CALCIUM + D [Concomitant]
  4. SENIOR MULTIVITAMIN [Concomitant]
  5. BILBERRY [Concomitant]
  6. SYSTANE [Concomitant]
     Route: 047
  7. ATENOLOL [Concomitant]

REACTIONS (2)
  - NASAL CONGESTION [None]
  - THERAPEUTIC RESPONSE UNEXPECTED [None]
